FAERS Safety Report 25554448 (Version 1)
Quarter: 2025Q3

REPORT INFORMATION
  Report Type: Spontaneous
  Country: US (occurrence: None)
  Receive Date: 20250714
  Receipt Date: 20250714
  Transmission Date: 20251021
  Serious: No
  Sender: FDA-CTU
  Company Number: None

PATIENT
  Age: 21 Month
  Sex: Male
  Weight: 13.05 kg

DRUGS (1)
  1. VTAMA [Suspect]
     Active Substance: TAPINAROF
     Indication: Eczema
     Route: 061
     Dates: start: 20250707, end: 20250707

REACTIONS (4)
  - Pyrexia [None]
  - Lethargy [None]
  - Sinus congestion [None]
  - Mood altered [None]

NARRATIVE: CASE EVENT DATE: 20250707
